FAERS Safety Report 21627191 (Version 1)
Quarter: 2022Q4

REPORT INFORMATION
  Report Type: Spontaneous
  Country: US (occurrence: None)
  Receive Date: 20221122
  Receipt Date: 20221122
  Transmission Date: 20230113
  Serious: No
  Sender: FDA-Public Use
  Company Number: US-ROCHE-3170496

PATIENT
  Sex: Female
  Weight: 72.640 kg

DRUGS (1)
  1. LUCENTIS [Suspect]
     Active Substance: RANIBIZUMAB
     Indication: Neovascular age-related macular degeneration
     Dosage: 1 INJECTION EVERY 4 TO 6 WEEKS
     Route: 050
     Dates: start: 202107

REACTIONS (4)
  - Eye disorder [Unknown]
  - Eye swelling [Unknown]
  - Feeling abnormal [Unknown]
  - Off label use [Unknown]
